FAERS Safety Report 7921783 (Version 3)
Quarter: 2012Q4

REPORT INFORMATION
  Report Type: 
  Country: US (occurrence: US)
  Receive Date: 20110429
  Receipt Date: 20121204
  Transmission Date: 20130627
  Serious: No
  Sender: FDA-Public Use
  Company Number: US-ASTRAZENECA-2010SE52823

PATIENT
  Age: 62 Year
  Sex: Male

DRUGS (3)
  1. NEXIUM [Suspect]
     Route: 048
  2. ADVAIR [Concomitant]
  3. AMOXICILIN [Concomitant]

REACTIONS (5)
  - Pain [Unknown]
  - Amnesia [Unknown]
  - Infection [Unknown]
  - Malaise [Unknown]
  - Intentional drug misuse [Unknown]
